FAERS Safety Report 14207422 (Version 5)
Quarter: 2018Q1

REPORT INFORMATION
  Report Type: Report from Study
  Country: KR (occurrence: KR)
  Receive Date: 20171121
  Receipt Date: 20180214
  Transmission Date: 20180508
  Serious: Yes (Death, Hospitalization)
  Sender: FDA-Public Use
  Company Number: KR-ROCHE-2019312

PATIENT
  Age: 56 Year
  Sex: Female
  Weight: 54.7 kg

DRUGS (13)
  1. RITUXIMAB. [Suspect]
     Active Substance: RITUXIMAB
     Indication: DIFFUSE LARGE B-CELL LYMPHOMA
     Dosage: C2D1
     Route: 058
     Dates: start: 20170927, end: 20170927
  2. GANCICLOVIR. [Concomitant]
     Active Substance: GANCICLOVIR
     Route: 042
     Dates: start: 20171011, end: 20180123
  3. TACROLIMUS. [Concomitant]
     Active Substance: TACROLIMUS
     Route: 048
     Dates: start: 20161217, end: 20171019
  4. TABAXIN [Concomitant]
     Active Substance: PIPERACILLIN SODIUM\TAZOBACTAM SODIUM
     Route: 042
     Dates: start: 20171019, end: 20171023
  5. MEROPENEM. [Concomitant]
     Active Substance: MEROPENEM
     Route: 042
     Dates: start: 20171023, end: 20180123
  6. TEICOPLANIN [Concomitant]
     Active Substance: TEICOPLANIN
     Route: 042
     Dates: start: 20171023, end: 20180123
  7. PEGFILGRASTIM [Suspect]
     Active Substance: PEGFILGRASTIM
     Dosage: C1D4
     Route: 058
     Dates: start: 20170909, end: 20170909
  8. BENDAMUSTINE [Suspect]
     Active Substance: BENDAMUSTINE
     Indication: DIFFUSE LARGE B-CELL LYMPHOMA
     Dosage: C2D1,2
     Route: 042
     Dates: start: 20170927, end: 20170928
  9. GANCICLOVIR. [Concomitant]
     Active Substance: GANCICLOVIR
     Route: 065
  10. RITUXIMAB. [Suspect]
     Active Substance: RITUXIMAB
     Indication: DIFFUSE LARGE B-CELL LYMPHOMA
     Dosage: C1D1 (577.5MG)
     Route: 042
     Dates: start: 20170906, end: 20170906
  11. BENDAMUSTINE [Suspect]
     Active Substance: BENDAMUSTINE
     Dosage: CYCLE 1 DAY 2,3
     Route: 042
     Dates: start: 20170907, end: 20170908
  12. TEICOPLANIN [Concomitant]
     Active Substance: TEICOPLANIN
     Route: 042
     Dates: start: 20171023, end: 20180123
  13. PEGFILGRASTIM [Suspect]
     Active Substance: PEGFILGRASTIM
     Indication: DIFFUSE LARGE B-CELL LYMPHOMA
     Dosage: C2D3
     Route: 058
     Dates: start: 20170928, end: 20170928

REACTIONS (2)
  - Platelet count decreased [Fatal]
  - Cytopenia [Unknown]

NARRATIVE: CASE EVENT DATE: 20171010
